FAERS Safety Report 21891694 (Version 1)
Quarter: 2023Q1

REPORT INFORMATION
  Report Type: Spontaneous
  Country: US (occurrence: US)
  Receive Date: 20230120
  Receipt Date: 20230120
  Transmission Date: 20230417
  Serious: Yes (Other)
  Sender: FDA-Public Use
  Company Number: US-JUBILANT CADISTA PHARMACEUTICALS-2023JUB00032

PATIENT
  Age: 56 Year
  Sex: Male

DRUGS (7)
  1. MYCOPHENOLATE MOFETIL [Suspect]
     Active Substance: MYCOPHENOLATE MOFETIL
     Indication: Immunosuppressant drug therapy
     Dosage: UNK
  2. PREDNISONE [Suspect]
     Active Substance: PREDNISONE
     Indication: Immunosuppressant drug therapy
     Dosage: UNK, TAPER
  3. RITUXIMAB [Suspect]
     Active Substance: RITUXIMAB
     Indication: Transplant rejection
     Dosage: UNK
  4. TACROLIMUS [Suspect]
     Active Substance: TACROLIMUS
     Indication: Immunosuppressant drug therapy
     Dosage: UNK
  5. THYMOCYTE IMMUNE GLOBULIN NOS [Suspect]
     Active Substance: THYMOCYTE IMMUNE GLOBULIN NOS
     Indication: Transplant rejection
     Dosage: UNK
  6. VALGANCICLOVIR [Concomitant]
     Active Substance: VALGANCICLOVIR
     Indication: Cytomegalovirus infection
     Dosage: UNK
  7. ATOVAQUONE [Concomitant]
     Active Substance: ATOVAQUONE
     Indication: Cytomegalovirus infection
     Dosage: UNK

REACTIONS (10)
  - Penile ulceration [Recovering/Resolving]
  - Malacoplakia [Recovering/Resolving]
  - Scrotal ulcer [Recovering/Resolving]
  - Staphylococcal infection [Recovering/Resolving]
  - Staphylococcal skin infection [Recovering/Resolving]
  - Skin ulcer [Recovering/Resolving]
  - Escherichia infection [Recovering/Resolving]
  - Proteus infection [Recovered/Resolved]
  - Klebsiella infection [Recovering/Resolving]
  - Enterococcal infection [Recovering/Resolving]
